FAERS Safety Report 22690102 (Version 5)
Quarter: 2023Q4

REPORT INFORMATION
  Report Type: Spontaneous
  Country: US (occurrence: US)
  Receive Date: 20230711
  Receipt Date: 20231207
  Transmission Date: 20240110
  Serious: Yes (Hospitalization)
  Sender: FDA-Public Use
  Company Number: US-BRISTOL-MYERS SQUIBB COMPANY-2023-093651

PATIENT
  Age: 89 Year
  Sex: Female

DRUGS (1)
  1. LENALIDOMIDE [Suspect]
     Active Substance: LENALIDOMIDE
     Indication: Plasma cell myeloma
     Dosage: 1 CAPSULE BY MOUTH EVERY OTHER DAY
     Route: 048
     Dates: start: 20221110

REACTIONS (4)
  - Urinary tract infection [Recovering/Resolving]
  - Off label use [Unknown]
  - Diarrhoea [Recovered/Resolved]
  - Product dose omission issue [Unknown]
